FAERS Safety Report 15985180 (Version 1)
Quarter: 2019Q1

REPORT INFORMATION
  Report Type: Spontaneous
  Country: PT (occurrence: PT)
  Receive Date: 20190220
  Receipt Date: 20190220
  Transmission Date: 20190418
  Serious: Yes (Other)
  Sender: FDA-Public Use
  Company Number: IND-PT-009507513-1902PRT006090

PATIENT
  Age: 73 Year
  Sex: Male

DRUGS (1)
  1. ROCURONIUM BROMIDE. [Suspect]
     Active Substance: ROCURONIUM BROMIDE
     Indication: INDUCTION OF ANAESTHESIA
     Route: 008

REACTIONS (4)
  - Gait disturbance [Recovering/Resolving]
  - Dysphagia [Recovering/Resolving]
  - Incorrect route of product administration [Recovering/Resolving]
  - Dysarthria [Recovering/Resolving]
